FAERS Safety Report 19196325 (Version 1)
Quarter: 2021Q2

REPORT INFORMATION
  Report Type: Spontaneous
  Country: US (occurrence: US)
  Receive Date: 20210429
  Receipt Date: 20210429
  Transmission Date: 20210717
  Serious: No
  Sender: FDA-Public Use
  Company Number: US-AMGEN-USASP2021065705

PATIENT
  Age: 48 Year
  Sex: Female

DRUGS (11)
  1. DULOXETINE. [Concomitant]
     Active Substance: DULOXETINE
     Dosage: UNK
  2. OMEPRAZOLE. [Concomitant]
     Active Substance: OMEPRAZOLE
     Dosage: UNK
  3. ESTRADIOL. [Concomitant]
     Active Substance: ESTRADIOL
     Dosage: UNK
  4. OTEZLA [Suspect]
     Active Substance: APREMILAST
     Indication: PSORIASIS
     Dosage: 30 MILLIGRAM, BID
     Route: 048
     Dates: start: 20210318
  5. KETOCONAZOLE. [Concomitant]
     Active Substance: KETOCONAZOLE
     Dosage: UNK
  6. DEXTRA [Concomitant]
     Active Substance: DEXTROMETHORPHAN HYDROBROMIDE
     Dosage: UNK
  7. NAPROXEN. [Concomitant]
     Active Substance: NAPROXEN
     Dosage: UNK
  8. AMPHETAMINE [Concomitant]
     Active Substance: AMPHETAMINE
     Dosage: UNK
  9. CETRIZINE [Concomitant]
     Active Substance: CETIRIZINE HYDROCHLORIDE
     Dosage: UNK
  10. DESONIDE. [Concomitant]
     Active Substance: DESONIDE
     Dosage: UNK
  11. HYDROCORT [HYDROCORTISONE ACETATE] [Concomitant]
     Dosage: UNK

REACTIONS (1)
  - Psoriasis [Not Recovered/Not Resolved]

NARRATIVE: CASE EVENT DATE: 2021
